FAERS Safety Report 15351534 (Version 1)
Quarter: 2018Q3

REPORT INFORMATION
  Report Type: Spontaneous
  Country: US (occurrence: US)
  Receive Date: 20180905
  Receipt Date: 20180905
  Transmission Date: 20181010
  Serious: No
  Sender: FDA-Public Use
  Company Number: US-ASTRAZENECA-2018SF01419

PATIENT
  Age: 51 Year
  Sex: Female
  Weight: 99.8 kg

DRUGS (10)
  1. BYDUREON BCISE [Suspect]
     Active Substance: EXENATIDE
     Indication: TYPE 2 DIABETES MELLITUS
     Route: 058
     Dates: start: 20180805
  2. LISINOPRIL. [Suspect]
     Active Substance: LISINOPRIL
     Indication: BLOOD PRESSURE MEASUREMENT
     Route: 048
  3. VITAMIN D3 [Concomitant]
     Active Substance: CHOLECALCIFEROL
     Indication: VITAMIN D DEFICIENCY
     Route: 048
     Dates: start: 2015
  4. PRAVASTATIN. [Concomitant]
     Active Substance: PRAVASTATIN
     Indication: DIABETES MELLITUS
     Route: 048
     Dates: start: 2008
  5. PREVACID [Concomitant]
     Active Substance: LANSOPRAZOLE
     Indication: HIATUS HERNIA
     Dosage: 1.0MG AS REQUIRED
     Route: 048
     Dates: start: 2008
  6. GLIPIZIDE. [Concomitant]
     Active Substance: GLIPIZIDE
     Indication: DIABETES MELLITUS
     Route: 048
     Dates: start: 2008
  7. PREVACID [Concomitant]
     Active Substance: LANSOPRAZOLE
     Indication: GASTROOESOPHAGEAL REFLUX DISEASE
     Dosage: 1.0MG AS REQUIRED
     Route: 048
     Dates: start: 2008
  8. BABY ASPIRIN ST. JOSEPH^S LOW DOSE [Concomitant]
     Indication: DIABETES MELLITUS
     Route: 048
     Dates: start: 2015
  9. METFORMIN [Concomitant]
     Active Substance: METFORMIN HYDROCHLORIDE
     Indication: DIABETES MELLITUS
     Route: 048
     Dates: start: 2008
  10. ACYCLOVIA [Concomitant]
     Indication: HERPES VIRUS INFECTION
     Dosage: 200.0MG AS REQUIRED
     Route: 048
     Dates: start: 2000

REACTIONS (10)
  - Vitamin D deficiency [Unknown]
  - Glycosylated haemoglobin increased [Unknown]
  - Vitreous floaters [Unknown]
  - Bladder disorder [Unknown]
  - Hiatus hernia [Not Recovered/Not Resolved]
  - Micturition urgency [Unknown]
  - Hypersensitivity [Unknown]
  - Eye disorder [Recovered/Resolved]
  - Herpes virus infection [Not Recovered/Not Resolved]
  - Condition aggravated [Not Recovered/Not Resolved]

NARRATIVE: CASE EVENT DATE: 2008
